FAERS Safety Report 5123468-4 (Version None)
Quarter: 2006Q4

REPORT INFORMATION
  Report Type: 
  Country: None (occurrence: None)
  Receive Date: 20061009
  Receipt Date: 20060726
  Transmission Date: 20070319
  Serious: Yes (Life-Threatening, Hospitalization)
  Sender: FDA-Public Use
  Company Number: JP-BOEHRINGER INGELHEIM PHARMACEUTICALS, INC.-2006-BP-08630NB

PATIENT
  Sex: Male
  Weight: 45 kg

DRUGS (7)
  1. MOBIC [Suspect]
     Indication: BACK PAIN
     Route: 048
     Dates: start: 20060624, end: 20060627
  2. LENDORMIN TABLETS [Suspect]
  3. CALBLOCK [Suspect]
     Indication: HYPERTENSION
     Dates: end: 20060628
  4. BLOPRESS [Suspect]
     Indication: HYPERTENSION
     Dates: end: 20060628
  5. SELBEX [Suspect]
     Indication: REFLUX OESOPHAGITIS
     Dates: end: 20060628
  6. LANSOPRAZOLE [Suspect]
     Indication: REFLUX OESOPHAGITIS
     Dates: end: 20060628
  7. DEPAS [Suspect]
     Route: 048

REACTIONS (8)
  - ALANINE AMINOTRANSFERASE INCREASED [None]
  - ASPARTATE AMINOTRANSFERASE INCREASED [None]
  - LIVER DISORDER [None]
  - MALAISE [None]
  - NAUSEA [None]
  - RENAL FAILURE [None]
  - SICK SINUS SYNDROME [None]
  - SINUS ARREST [None]
